FAERS Safety Report 8352899-4 (Version None)
Quarter: 2012Q2

REPORT INFORMATION
  Report Type: 
  Country: None (occurrence: None)
  Receive Date: 20120511
  Receipt Date: 20120427
  Transmission Date: 20120825
  Serious: Yes (Other)
  Sender: FDA-Public Use
  Company Number: US-MYLANLABS-2012S1009120

PATIENT
  Age: 39 Year
  Sex: Male

DRUGS (6)
  1. ARIPIPRAZOLE [Suspect]
     Indication: PSYCHOTIC DISORDER
     Dosage: HS
     Route: 048
  2. LORAZEPAM [Concomitant]
     Indication: ANXIETY
     Dosage: PRN. RECEIVED 3MG ON DAY 1, 1MG ON DAY 2, 4MG ON DAY 3, NIL ON DAY 4.
     Route: 048
  3. ARIPIPRAZOLE [Suspect]
     Route: 048
  4. DOXYCYCLINE [Suspect]
     Route: 048
  5. VALPROIC ACID [Suspect]
     Indication: AGGRESSION
     Route: 048
  6. TEMAZEPAM [Suspect]
     Dosage: HS
     Route: 048

REACTIONS (2)
  - CATATONIA [None]
  - BLOOD CREATINE PHOSPHOKINASE INCREASED [None]
